FAERS Safety Report 14449510 (Version 1)
Quarter: 2018Q1

REPORT INFORMATION
  Report Type: Report from Study
  Country: CO (occurrence: CO)
  Receive Date: 20180127
  Receipt Date: 20180127
  Transmission Date: 20180509
  Serious: Yes (Death, Life-Threatening, Hospitalization, Other)
  Sender: FDA-Public Use
  Company Number: CO-AMGEN-COLSL2018001343

PATIENT
  Age: 85 Year
  Sex: Male

DRUGS (1)
  1. VECTIBIX [Suspect]
     Active Substance: PANITUMUMAB
     Indication: COLORECTAL CANCER METASTATIC
     Dosage: 300 MG, Q2WK
     Route: 042
     Dates: start: 20171122, end: 20171122

REACTIONS (5)
  - Death [Fatal]
  - Decreased appetite [Not Recovered/Not Resolved]
  - Asthenia [Not Recovered/Not Resolved]
  - Hospitalisation [Unknown]
  - General physical health deterioration [Not Recovered/Not Resolved]

NARRATIVE: CASE EVENT DATE: 20171219
